FAERS Safety Report 7348091-2 (Version None)
Quarter: 2011Q1

REPORT INFORMATION
  Report Type: 
  Country: None (occurrence: None)
  Receive Date: 20110311
  Receipt Date: 20110303
  Transmission Date: 20110831
  Serious: Yes (Hospitalization, Other)
  Sender: FDA-Public Use
  Company Number: US-ASTRAZENECA-2010SE23064

PATIENT
  Age: 11628 Day
  Sex: Female
  Weight: 55.8 kg

DRUGS (18)
  1. CLONAZEPAM [Concomitant]
     Indication: ANXIETY
     Route: 048
  2. ZYRTEC [Concomitant]
     Indication: MULTIPLE ALLERGIES
  3. PREDNISONE [Concomitant]
     Route: 048
  4. METHOTREXATE [Concomitant]
     Route: 058
  5. SEROQUEL [Suspect]
     Indication: BIPOLAR I DISORDER
     Route: 048
     Dates: start: 20060101
  6. DEPAKOTE [Concomitant]
     Route: 048
  7. SYNTHROID [Concomitant]
     Indication: HYPOTHYROIDISM
     Route: 048
  8. ATENOLOL [Concomitant]
     Indication: TACHYCARDIA
     Route: 048
  9. HYDROCODONE [Concomitant]
     Indication: PAIN
     Dosage: 10/325 EVERY 6 HOURS
     Route: 048
  10. AMBIEN [Concomitant]
     Indication: INSOMNIA
     Route: 048
  11. OTC IRON SUPPLEMENT [Concomitant]
     Dosage: DAILY
  12. NEXIUM [Suspect]
     Indication: GASTROOESOPHAGEAL REFLUX DISEASE
     Route: 048
  13. PAXIL [Concomitant]
     Indication: DEPRESSION
     Route: 048
  14. CALCIUM [Concomitant]
  15. CITAMEL [Concomitant]
     Route: 048
  16. ASPIRIN [Concomitant]
     Route: 048
  17. VITAMIN B-12 [Concomitant]
     Route: 058
  18. MULTI-VITAMIN [Concomitant]
     Dosage: DAILY

REACTIONS (25)
  - WRIST FRACTURE [None]
  - CONVULSION [None]
  - TOOTH FRACTURE [None]
  - DRUG INEFFECTIVE [None]
  - TENDON INJURY [None]
  - RHEUMATOID ARTHRITIS [None]
  - TACHYCARDIA [None]
  - ABDOMINAL DISCOMFORT [None]
  - ABDOMINAL PAIN [None]
  - FEMALE GENITAL OPERATION [None]
  - PERIORBITAL HAEMATOMA [None]
  - OROPHARYNGEAL PAIN [None]
  - CONTUSION [None]
  - MALAISE [None]
  - VOMITING [None]
  - ANXIETY [None]
  - GASTROOESOPHAGEAL REFLUX DISEASE [None]
  - HYPOTHYROIDISM [None]
  - DRUG DOSE OMISSION [None]
  - UPPER LIMB FRACTURE [None]
  - SURGERY [None]
  - THYROID CANCER [None]
  - INSOMNIA [None]
  - GRAND MAL CONVULSION [None]
  - NAUSEA [None]
